FAERS Safety Report 18444866 (Version 1)
Quarter: 2020Q4

REPORT INFORMATION
  Report Type: Spontaneous
  Country: US (occurrence: US)
  Receive Date: 20201030
  Receipt Date: 20201030
  Transmission Date: 20210114
  Serious: No
  Sender: FDA-Public Use
  Company Number: US-MACLEODS PHARMACEUTICALS US LTD-MAC2020028757

PATIENT

DRUGS (4)
  1. OLMESARTAN/AMLODIPINE 20/5 MG TABLET [Suspect]
     Active Substance: AMLODIPINE BESYLATE\OLMESARTAN MEDOXOMIL
     Indication: HYPERTENSION
     Dosage: 1 DOSAGE FORM, QD
     Route: 048
  2. METOPROLOL. [Concomitant]
     Active Substance: METOPROLOL
     Indication: PRODUCT USED FOR UNKNOWN INDICATION
     Dosage: UNK
     Route: 065
  3. HUMIRA [Concomitant]
     Active Substance: ADALIMUMAB
     Indication: PRODUCT USED FOR UNKNOWN INDICATION
     Dosage: UNK
     Route: 051
  4. COSENTYX [Concomitant]
     Active Substance: SECUKINUMAB
     Indication: ARTHRITIS
     Dosage: UNK, ONCE MONTH
     Route: 065

REACTIONS (2)
  - Headache [Recovered/Resolved]
  - Product substitution issue [Recovered/Resolved]
